FAERS Safety Report 24266982 (Version 1)
Quarter: 2024Q3

REPORT INFORMATION
  Report Type: Report from Study
  Country: BR (occurrence: BR)
  Receive Date: 20240830
  Receipt Date: 20240830
  Transmission Date: 20241016
  Serious: Yes (Other)
  Sender: TAKEDA
  Company Number: BR-TAKEDA-2021TUS041666

PATIENT
  Age: 6 Year
  Sex: Male

DRUGS (2)
  1. HEMO-8R [Suspect]
     Active Substance: ANTIHEMOPHILIC FACTOR, HUMAN RECOMBINANT
     Indication: Factor VIII deficiency
     Dosage: UNK
     Route: 042
  2. HEMO-8R [Suspect]
     Active Substance: ANTIHEMOPHILIC FACTOR, HUMAN RECOMBINANT
     Dosage: 1000 INTERNATIONAL UNIT, 3/WEEK
     Route: 042
     Dates: start: 20150814

REACTIONS (5)
  - Fall [Recovering/Resolving]
  - Buttock injury [Recovering/Resolving]
  - Contusion [Recovering/Resolving]
  - Face injury [Recovering/Resolving]
  - Factor VIII inhibition [Unknown]

NARRATIVE: CASE EVENT DATE: 20210628
